FAERS Safety Report 16868088 (Version 2)
Quarter: 2019Q4

REPORT INFORMATION
  Report Type: Spontaneous
  Country: US (occurrence: US)
  Receive Date: 20190930
  Receipt Date: 20191016
  Transmission Date: 20200122
  Serious: Yes (Other)
  Sender: FDA-Public Use
  Company Number: US-KYOWAKIRIN-2019BKK014974

PATIENT

DRUGS (1)
  1. CRYSVITA [Suspect]
     Active Substance: BUROSUMAB-TWZA
     Indication: HEREDITARY HYPOPHOSPHATAEMIC RICKETS
     Dosage: UNKNOWN
     Route: 065

REACTIONS (4)
  - Multiple endocrine neoplasia Type 2A [Unknown]
  - Blood parathyroid hormone increased [Unknown]
  - Blood calcium increased [Unknown]
  - Hypertension [Unknown]

NARRATIVE: CASE EVENT DATE: 2019
